FAERS Safety Report 15160239 (Version 2)
Quarter: 2018Q4

REPORT INFORMATION
  Report Type: Spontaneous
  Country: US (occurrence: US)
  Receive Date: 20180718
  Receipt Date: 20181129
  Transmission Date: 20190204
  Serious: Yes (Other)
  Sender: FDA-Public Use
  Company Number: US-SA-2018SA193427

PATIENT
  Sex: Female

DRUGS (1)
  1. LEMTRADA [Suspect]
     Active Substance: ALEMTUZUMAB
     Indication: MULTIPLE SCLEROSIS
     Dosage: UNK UNK, QD
     Route: 041
     Dates: start: 201805

REACTIONS (5)
  - Hyporeflexia [Unknown]
  - Autoimmune thyroid disorder [Unknown]
  - Asthenia [Unknown]
  - Rash vesicular [Unknown]
  - Sensory loss [Unknown]
